FAERS Safety Report 8143416-2 (Version None)
Quarter: 2012Q1

REPORT INFORMATION
  Report Type: 
  Country: None (occurrence: None)
  Receive Date: 20120217
  Receipt Date: 20120209
  Transmission Date: 20120608
  Serious: Yes (Hospitalization)
  Sender: FDA-Public Use
  Company Number: JP-JNJFOC-20120105629

PATIENT
  Sex: Female

DRUGS (12)
  1. FENTANYL-100 [Suspect]
     Indication: PAIN
     Route: 062
     Dates: start: 20111206, end: 20111209
  2. TIZANIDINE HCL [Concomitant]
     Indication: PRODUCT USED FOR UNKNOWN INDICATION
     Route: 048
  3. MORPHINE HYDROCHLORIDE [Concomitant]
     Indication: PAIN
     Route: 048
     Dates: start: 20111118, end: 20111206
  4. MENEST [Concomitant]
     Indication: PRODUCT USED FOR UNKNOWN INDICATION
     Route: 048
  5. MAGMITT [Concomitant]
     Indication: PROPHYLAXIS
     Route: 048
  6. QUETIAPINE FUMARATE [Concomitant]
     Indication: INSOMNIA
     Route: 048
     Dates: start: 20111125, end: 20111214
  7. PRAMIPEXOLE DIHYDROCHLORIDE [Concomitant]
     Indication: PRODUCT USED FOR UNKNOWN INDICATION
     Route: 048
  8. MEPIVACAINE HCL [Concomitant]
     Indication: PAIN
     Route: 065
     Dates: start: 20111130, end: 20111205
  9. SYMMETREL [Concomitant]
     Indication: PRODUCT USED FOR UNKNOWN INDICATION
     Route: 048
  10. ZOLOFT [Concomitant]
     Indication: PRODUCT USED FOR UNKNOWN INDICATION
     Route: 048
  11. PURSENNID [Concomitant]
     Indication: PROPHYLAXIS
     Route: 048
  12. QUETIAPINE FUMARATE [Concomitant]
     Indication: DEPRESSION
     Route: 048
     Dates: start: 20111125, end: 20111214

REACTIONS (1)
  - DELIRIUM [None]
